FAERS Safety Report 5908961-6 (Version None)
Quarter: 2008Q4

REPORT INFORMATION
  Report Type: 
  Country: None (occurrence: None)
  Receive Date: 20081001
  Receipt Date: 20080918
  Transmission Date: 20090506
  Serious: Yes (Hospitalization, Other)
  Sender: FDA-Public Use
  Company Number: WAES 0809USA00219

PATIENT
  Age: 69 Year
  Sex: Male

DRUGS (7)
  1. ZOCOR [Suspect]
     Indication: ACUTE CORONARY SYNDROME
     Dosage: 40 MG DAILY PO
     Route: 048
     Dates: start: 20070813
  2. TAB PLACEBO (UNSPECIFIED) [Suspect]
     Indication: ACUTE CORONARY SYNDROME
     Dosage: PO
     Route: 048
     Dates: start: 20080813
  3. ASPIRIN [Suspect]
     Dosage: PO
     Route: 048
     Dates: start: 20070808
  4. TAB CLOPIDOGREL BISULFATE [Suspect]
     Dosage: 75 MG DAILY PO
     Route: 048
     Dates: start: 20070808
  5. TAB RAMIPRIL [Suspect]
     Dosage: 10 MG DAILY PO
     Route: 048
     Dates: start: 20080808
  6. TAB TERAZOSIN HYDROCHLORIDE [Suspect]
     Dosage: 2 MG DAILY PO
     Route: 048
     Dates: start: 20080405
  7. LEVOFLOXACIN [Suspect]
     Dosage: 500 MG DAILY PO
     Route: 048
     Dates: start: 20080405, end: 20080416

REACTIONS (2)
  - PLEURISY [None]
  - SYSTEMIC LUPUS ERYTHEMATOSUS [None]
